FAERS Safety Report 11142436 (Version 1)
Quarter: 2015Q2

REPORT INFORMATION
  Report Type: Spontaneous
  Country: US (occurrence: None)
  Receive Date: 20150526
  Receipt Date: 20150526
  Transmission Date: 20150821
  Serious: Yes (Disabling, Other)
  Sender: FDA-Public Use
  Company Number: None

PATIENT
  Age: 69 Year
  Sex: Female
  Weight: 56.7 kg

DRUGS (10)
  1. ATENOLOL. [Concomitant]
     Active Substance: ATENOLOL
  2. LEVOTHYROXINE [Concomitant]
     Active Substance: LEVOTHYROXINE
  3. VITAMIN D [Concomitant]
     Active Substance: CHOLECALCIFEROL
  4. LYRICA [Suspect]
     Active Substance: PREGABALIN
     Indication: NEURALGIA
     Dosage: 2 100MG PILLS, LATER 2 50 MG P TWICE DAILY --
  5. LYRICA [Suspect]
     Active Substance: PREGABALIN
     Indication: NERVE ROOT COMPRESSION
     Dosage: 2 100MG PILLS, LATER 2 50 MG P TWICE DAILY --
  6. MULTIVITAMIN [Concomitant]
     Active Substance: VITAMINS
  7. FLUOXETINE [Concomitant]
     Active Substance: FLUOXETINE\FLUOXETINE HYDROCHLORIDE
  8. PANTOPRAZOLE [Concomitant]
     Active Substance: PANTOPRAZOLE SODIUM
  9. FISH OIL [Concomitant]
     Active Substance: FISH OIL
  10. ATORVASTATIN [Concomitant]
     Active Substance: ATORVASTATIN

REACTIONS (2)
  - Somnolence [None]
  - Dental caries [None]

NARRATIVE: CASE EVENT DATE: 20140529
